FAERS Safety Report 5656278-X (Version None)
Quarter: 2008Q1

REPORT INFORMATION
  Report Type: 
  Country: None (occurrence: None)
  Receive Date: 20080309
  Receipt Date: 20071029
  Transmission Date: 20080703
  Serious: No
  Sender: FDA-Public Use
  Company Number: US-BAYER-200712156BCC

PATIENT
  Age: 74 Year
  Sex: Female
  Weight: 76 kg

DRUGS (2)
  1. ALEVE [Suspect]
     Indication: ANALGESIA
     Dosage: TOTAL DAILY DOSE: 220 MG  UNIT DOSE: 220 MG
     Route: 048
     Dates: start: 20070601
  2. HIGH BLOOD PRESSURE MEDICATION [Concomitant]

REACTIONS (4)
  - DYSGEUSIA [None]
  - FOREIGN BODY TRAUMA [None]
  - PAIN [None]
  - PHARYNGEAL OEDEMA [None]
